FAERS Safety Report 10917020 (Version 2)
Quarter: 2015Q2

REPORT INFORMATION
  Report Type: Spontaneous
  Country: US (occurrence: US)
  Receive Date: 20150316
  Receipt Date: 20150524
  Transmission Date: 20150821
  Serious: Yes (Hospitalization)
  Sender: FDA-Public Use
  Company Number: US-JNJFOC-20140823585

PATIENT
  Sex: Male

DRUGS (13)
  1. FLOMAX [Concomitant]
     Active Substance: TAMSULOSIN HYDROCHLORIDE
     Route: 065
  2. XGEVA [Concomitant]
     Active Substance: DENOSUMAB
     Route: 065
  3. CASODEX [Concomitant]
     Active Substance: BICALUTAMIDE
     Route: 065
  4. AVODART [Concomitant]
     Active Substance: DUTASTERIDE
     Route: 065
  5. ZYTIGA [Suspect]
     Active Substance: ABIRATERONE ACETATE
     Indication: PRODUCT USED FOR UNKNOWN INDICATION
     Route: 048
     Dates: start: 20130731
  6. ACYCLOVIR. [Concomitant]
     Active Substance: ACYCLOVIR
     Route: 065
  7. FLONASE [Concomitant]
     Active Substance: FLUTICASONE PROPIONATE
     Route: 065
  8. LIPITOR [Concomitant]
     Active Substance: ATORVASTATIN CALCIUM
     Route: 065
  9. CALCIUM AND VIT D [Concomitant]
     Route: 065
  10. LOPRESSOR [Concomitant]
     Active Substance: METOPROLOL TARTRATE
     Route: 065
  11. ASPIRIN. [Concomitant]
     Active Substance: ASPIRIN
     Route: 065
  12. MOBIC [Concomitant]
     Active Substance: MELOXICAM
     Route: 065
  13. LUPRON [Concomitant]
     Active Substance: LEUPROLIDE ACETATE
     Route: 065

REACTIONS (1)
  - Hospitalisation [Unknown]

NARRATIVE: CASE EVENT DATE: 20140402
